FAERS Safety Report 9310240 (Version 1)
Quarter: 2013Q2

REPORT INFORMATION
  Report Type: Report from Study
  Country: CA (occurrence: CA)
  Receive Date: 20130527
  Receipt Date: 20130527
  Transmission Date: 20140414
  Serious: Yes (Hospitalization)
  Sender: FDA-Public Use
  Company Number: PHHY2013CA052459

PATIENT
  Sex: Female

DRUGS (2)
  1. ACLASTA [Suspect]
     Indication: OSTEOPOROSIS
     Dosage: UNK
     Route: 042
     Dates: start: 20110628
  2. ACLASTA [Suspect]
     Dosage: UNK
     Route: 042
     Dates: start: 20120710

REACTIONS (3)
  - Blood electrolytes decreased [Unknown]
  - Diarrhoea [Unknown]
  - Blood calcium decreased [Unknown]
